FAERS Safety Report 8619331-4 (Version None)
Quarter: 2012Q3

REPORT INFORMATION
  Report Type: 
  Country: None (occurrence: None)
  Receive Date: 20120824
  Receipt Date: 20120818
  Transmission Date: 20120928
  Serious: Yes (Other)
  Sender: FDA-Public Use
  Company Number: US-PFIZER INC-2012203421

PATIENT
  Sex: Male

DRUGS (1)
  1. VIAGRA [Suspect]
     Indication: ERECTILE DYSFUNCTION
     Dosage: 50 MG, UNK
     Route: 048
     Dates: start: 20120817

REACTIONS (5)
  - TESTICULAR DISORDER [None]
  - ERECTION INCREASED [None]
  - DRUG EFFECT DECREASED [None]
  - PENIS DISORDER [None]
  - PREMATURE EJACULATION [None]
